FAERS Safety Report 5792774-2 (Version None)
Quarter: 2008Q2

REPORT INFORMATION
  Report Type: 
  Country: None (occurrence: None)
  Receive Date: 20080624
  Receipt Date: 20080610
  Transmission Date: 20081010
  Serious: Yes (Other)
  Sender: FDA-Public Use
  Company Number: 2008BI011474

PATIENT
  Age: 27 Year
  Sex: Female
  Weight: 57.6068 kg

DRUGS (3)
  1. TYSABRI [Suspect]
     Indication: MULTIPLE SCLEROSIS
     Dosage: 300 MG; QM; IV
     Route: 042
     Dates: start: 20070323
  2. OXYBUTYNIN CHLORIDE [Concomitant]
  3. NUVARING [Concomitant]

REACTIONS (5)
  - CEREBELLAR ATAXIA [None]
  - ERYTHEMA [None]
  - MALIGNANT MELANOMA [None]
  - NEUROGENIC BLADDER [None]
  - SCAR [None]
